FAERS Safety Report 7492773-9 (Version None)
Quarter: 2011Q2

REPORT INFORMATION
  Report Type: 
  Country: None (occurrence: None)
  Receive Date: 20110519
  Receipt Date: 20110512
  Transmission Date: 20111010
  Serious: Yes (Other)
  Sender: FDA-Public Use
  Company Number: US-BAYER-2011-001517

PATIENT
  Sex: Female
  Weight: 90.703 kg

DRUGS (21)
  1. MAGNEVIST [Suspect]
     Indication: NUCLEAR MAGNETIC RESONANCE IMAGING
  2. GADOLINIUM IN UNSPECIFIED DRUG [Suspect]
     Dosage: UNK
     Dates: start: 20041012, end: 20041012
  3. ACETAMINOPHEN [Concomitant]
  4. GADOLINIUM IN UNSPECIFIED DRUG [Suspect]
     Indication: NUCLEAR MAGNETIC RESONANCE IMAGING
     Dosage: UNK
     Dates: start: 20040917, end: 20040917
  5. RENAGEL [Concomitant]
  6. GADOLINIUM IN UNSPECIFIED DRUG [Suspect]
     Dosage: UNK
     Dates: start: 20050426, end: 20050426
  7. GADOLINIUM IN UNSPECIFIED DRUG [Suspect]
     Indication: CEREBRAL INFARCTION
     Dosage: UNK
     Dates: start: 20050402, end: 20050402
  8. LYRICA [Concomitant]
  9. EPOGEN [Concomitant]
  10. FOLIC ACID [Concomitant]
  11. PHOSLO [Concomitant]
  12. NEURONTIN [Concomitant]
  13. OPTIMARK [Suspect]
     Indication: NUCLEAR MAGNETIC RESONANCE IMAGING
  14. FOLIC ACID [Concomitant]
  15. SEVELAMER [Concomitant]
  16. INSULIN [Concomitant]
  17. HEPARIN [Concomitant]
  18. OMNISCAN [Suspect]
     Indication: NUCLEAR MAGNETIC RESONANCE IMAGING
  19. PRILOSEC [Concomitant]
  20. CALCITRIOL [Concomitant]
  21. ULTRACET [Concomitant]

REACTIONS (14)
  - FIBROSIS [None]
  - SCAR [None]
  - SKIN FIBROSIS [None]
  - DYSSTASIA [None]
  - SKIN TIGHTNESS [None]
  - MUSCLE RIGIDITY [None]
  - GENERAL PHYSICAL HEALTH DETERIORATION [None]
  - LIMB DEFORMITY [None]
  - PAIN OF SKIN [None]
  - SKIN INDURATION [None]
  - PAIN [None]
  - SKIN HYPERTROPHY [None]
  - NEPHROGENIC SYSTEMIC FIBROSIS [None]
  - MOBILITY DECREASED [None]
